FAERS Safety Report 15394568 (Version 1)
Quarter: 2018Q3

REPORT INFORMATION
  Report Type: Report from Study
  Country: CN (occurrence: CN)
  Receive Date: 20180918
  Receipt Date: 20180918
  Transmission Date: 20181010
  Serious: Yes (Other)
  Sender: FDA-Public Use
  Company Number: CN-ROCHE-2184006

PATIENT

DRUGS (3)
  1. RITUXIMAB. [Suspect]
     Active Substance: RITUXIMAB
     Indication: CENTRAL NERVOUS SYSTEM LYMPHOMA
     Route: 037
  2. DEXAMETHASONE. [Concomitant]
     Active Substance: DEXAMETHASONE
     Dosage: 30 MINUTES BEFORE LUMBAR PUNCTURE
     Route: 042
  3. DEXAMETHASONE. [Concomitant]
     Active Substance: DEXAMETHASONE
     Route: 037

REACTIONS (11)
  - Pain [Unknown]
  - Urinary retention [Recovering/Resolving]
  - Hypoaesthesia [Recovered/Resolved]
  - Mania [Recovering/Resolving]
  - Off label use [Unknown]
  - Dyspnoea [Recovering/Resolving]
  - Feeling hot [Unknown]
  - Intentional product use issue [Unknown]
  - Back pain [Recovered/Resolved]
  - Headache [Recovered/Resolved]
  - Hyperhidrosis [Recovering/Resolving]
